FAERS Safety Report 26129674 (Version 2)
Quarter: 2025Q4

REPORT INFORMATION
  Report Type: Spontaneous
  Country: US (occurrence: US)
  Receive Date: 20251208
  Receipt Date: 20251210
  Transmission Date: 20260118
  Serious: No
  Sender: JOHNSON AND JOHNSON
  Company Number: US-JNJFOC-20251204335

PATIENT

DRUGS (1)
  1. TREMFYA [Suspect]
     Active Substance: GUSELKUMAB
     Indication: Product used for unknown indication

REACTIONS (6)
  - Device issue [Unknown]
  - Device issue [Unknown]
  - Product colour issue [Unknown]
  - Syringe issue [Unknown]
  - Exposure via skin contact [Unknown]
  - Product lot number issue [Unknown]
